FAERS Safety Report 19575314 (Version 4)
Quarter: 2021Q3

REPORT INFORMATION
  Report Type: Spontaneous
  Country: US (occurrence: US)
  Receive Date: 20210719
  Receipt Date: 20210927
  Transmission Date: 20211014
  Serious: Yes (Other)
  Sender: FDA-Public Use
  Company Number: US-ORGANON-O2107USA000860

PATIENT
  Age: 37 Year
  Sex: Female

DRUGS (4)
  1. PREGNYL [Suspect]
     Active Substance: CHORIOGONADOTROPIN ALFA
     Indication: OVULATION INDUCTION
     Dosage: 10,000 UNITS, ONCE (STRENGTH REPORTED AS 10,000 UNITS)
     Route: 058
     Dates: start: 20210613, end: 20210613
  2. CLOMID [Concomitant]
     Active Substance: CLOMIPHENE CITRATE
     Dosage: 100 MILLIGRAM FOR 5 DAYS AT START OF MENSTRUAL CYCLE
     Route: 048
     Dates: start: 20210606, end: 20210610
  3. WATER FOR INJECTION [Suspect]
     Active Substance: WATER
     Dosage: 1 TIME
     Dates: start: 20210613
  4. CRINONE [Suspect]
     Active Substance: PROGESTERONE
     Dosage: 1 GEL APPLICATOR EACH MORNING VAGINALLY
     Route: 067
     Dates: start: 20210621, end: 20210802

REACTIONS (4)
  - Maternal exposure before pregnancy [Recovered/Resolved]
  - Muscle spasms [Not Recovered/Not Resolved]
  - Foetal growth abnormality [Unknown]
  - Abortion spontaneous [Unknown]

NARRATIVE: CASE EVENT DATE: 20210613
